FAERS Safety Report 18717812 (Version 1)
Quarter: 2021Q1

REPORT INFORMATION
  Report Type: Spontaneous
  Country: US (occurrence: US)
  Receive Date: 20210108
  Receipt Date: 20210108
  Transmission Date: 20210419
  Serious: Yes (Other)
  Sender: FDA-Public Use
  Company Number: US-BAYER-2021-007888

PATIENT
  Age: 85 Year
  Sex: Female

DRUGS (2)
  1. ALKA?SELTZER PLUS DAY AND NIGHT MULTI?SYMPTOM COLD AND FLU FORMULA [Suspect]
     Active Substance: ACETAMINOPHEN\DEXTROMETHORPHAN HYDROBROMIDE\DOXYLAMINE SUCCINATE\PHENYLEPHRINE
     Indication: ALLERGIC RESPIRATORY SYMPTOM
     Dosage: 1 DF
     Route: 048
  2. ALKA?SELTZER PLUS DAY AND NIGHT MULTI?SYMPTOM COLD AND FLU FORMULA [Suspect]
     Active Substance: ACETAMINOPHEN\DEXTROMETHORPHAN HYDROBROMIDE\DOXYLAMINE SUCCINATE\PHENYLEPHRINE
     Indication: NASOPHARYNGITIS

REACTIONS (4)
  - Foreign body in throat [Unknown]
  - Product use complaint [Unknown]
  - Choking [Unknown]
  - Emotional distress [Unknown]

NARRATIVE: CASE EVENT DATE: 20200501
